FAERS Safety Report 7825393-4 (Version None)
Quarter: 2011Q4

REPORT INFORMATION
  Report Type: 
  Country: None (occurrence: None)
  Receive Date: 20111019
  Receipt Date: 20111013
  Transmission Date: 20120403
  Serious: Yes (Other)
  Sender: FDA-Public Use
  Company Number: CH-SANOFI-AVENTIS-2011SA067919

PATIENT
  Age: 84 Year
  Sex: Female

DRUGS (8)
  1. ASPIRIN [Concomitant]
  2. ROSUVASTATIN CALCIUM [Concomitant]
  3. PERINDOPRIL ERBUMINE [Concomitant]
  4. ESCITALOPRAM OXALATE [Concomitant]
  5. FLAGYL [Suspect]
     Indication: DIVERTICULITIS
     Route: 048
     Dates: end: 20110904
  6. TRAZODONE HCL [Concomitant]
  7. CIPROFLOXACIN [Suspect]
     Indication: DIVERTICULITIS
     Route: 048
     Dates: end: 20110904
  8. METOPROLOL SUCCINATE [Concomitant]

REACTIONS (3)
  - DYSAESTHESIA [None]
  - PANIC REACTION [None]
  - HEADACHE [None]
